FAERS Safety Report 5369392-3 (Version None)
Quarter: 2007Q2

REPORT INFORMATION
  Report Type: 
  Country: None (occurrence: None)
  Receive Date: 20070620
  Receipt Date: 20070604
  Transmission Date: 20071010
  Serious: Yes (Other)
  Sender: FDA-Public Use
  Company Number: 8024478

PATIENT
  Age: 81 Year
  Sex: Male

DRUGS (8)
  1. KEPPRA [Suspect]
     Indication: EPILEPSY
     Dosage: 1500 MG /D PO
     Route: 048
     Dates: start: 20050101
  2. KARDEGIC /00002703/ [Concomitant]
  3. MEDIATENSYL /00631801/ [Concomitant]
  4. ALDALIX [Concomitant]
  5. TEMERIT /01339101/ [Concomitant]
  6. CYCLO 3 /00748701/ [Concomitant]
  7. FOSAVANCE [Concomitant]
  8. CALCIUM CHLORIDE [Concomitant]

REACTIONS (2)
  - MUSCLE SPASMS [None]
  - PARTIAL SEIZURES [None]
